FAERS Safety Report 6107955-8 (Version None)
Quarter: 2009Q1

REPORT INFORMATION
  Report Type: 
  Country: None (occurrence: None)
  Receive Date: 20090309
  Receipt Date: 20090224
  Transmission Date: 20090719
  Serious: Yes (Hospitalization, Other)
  Sender: FDA-Public Use
  Company Number: PHHY2009CN02016

PATIENT
  Sex: Male
  Weight: 60 kg

DRUGS (3)
  1. SEBIVO [Suspect]
     Indication: HEPATITIS B
     Dosage: 600 MG, QD
     Route: 048
     Dates: start: 20080112, end: 20081231
  2. PEGASYS [Concomitant]
     Indication: HEPATITIS B
     Dosage: 135 MG QM
     Route: 058
     Dates: start: 20080101, end: 20081128
  3. ENTECAVIR [Concomitant]

REACTIONS (39)
  - ALANINE AMINOTRANSFERASE INCREASED [None]
  - ANOREXIA [None]
  - ASPARTATE AMINOTRANSFERASE INCREASED [None]
  - ASTHENIA [None]
  - BLOOD BILIRUBIN INCREASED [None]
  - BLOOD CALCIUM INCREASED [None]
  - BLOOD CREATINE PHOSPHOKINASE INCREASED [None]
  - BLOOD CREATININE DECREASED [None]
  - BLOOD LACTATE DEHYDROGENASE INCREASED [None]
  - BLOOD UREA INCREASED [None]
  - BLOOD URIC ACID INCREASED [None]
  - C-REACTIVE PROTEIN INCREASED [None]
  - CHOLECYSTITIS CHRONIC [None]
  - CONDITION AGGRAVATED [None]
  - DYSPNOEA [None]
  - GALLBLADDER POLYP [None]
  - GAMMA-GLUTAMYLTRANSFERASE INCREASED [None]
  - HAEMODIALYSIS [None]
  - HEART RATE INCREASED [None]
  - HEPATITIS B [None]
  - HEPATOJUGULAR REFLUX [None]
  - JOINT SWELLING [None]
  - LACTIC ACIDOSIS [None]
  - LUNG INFECTION [None]
  - MALAISE [None]
  - MUSCULAR WEAKNESS [None]
  - MYALGIA [None]
  - MYOCARDITIS [None]
  - MYOGLOBIN BLOOD INCREASED [None]
  - NAUSEA [None]
  - PALPITATIONS [None]
  - PCO2 DECREASED [None]
  - PNEUMONIA [None]
  - PO2 INCREASED [None]
  - RHABDOMYOLYSIS [None]
  - TACHYPNOEA [None]
  - URINE OUTPUT DECREASED [None]
  - VOMITING [None]
  - WHITE BLOOD CELL COUNT INCREASED [None]
